FAERS Safety Report 9113339 (Version 1)
Quarter: 2013Q1

REPORT INFORMATION
  Report Type: Spontaneous
  Country: US (occurrence: US)
  Receive Date: 20130130
  Receipt Date: 20130130
  Transmission Date: 20140127
  Serious: Yes (Other)
  Sender: FDA-Public Use
  Company Number: US-RB-048470-13

PATIENT
  Age: 22 Year
  Sex: Female

DRUGS (4)
  1. MUCINEX FAST MAX ADULT COLD, FLU + SORE THROAT (ACETAMINOPHEN) [Suspect]
     Indication: PRODUCT USED FOR UNKNOWN INDICATION
     Dosage: ONE DOSE OF 12ML ON 03-JAN-2013 AND ONE DOSE (UNKNOWN AMOUNT) ON 04-JAN-2013
     Route: 048
     Dates: start: 20130103
  2. MUCINEX FAST MAX ADULT COLD, FLU + SORE THROAT (DEXTROMETHORPHAN) [Suspect]
  3. MUCINEX FAST MAX ADULT COLD, FLU + SORE THROAT (GUAIFENESIN) [Suspect]
  4. MUCINEX FAST MAX ADULT COLD, FLU + SORE THROAT (PHENYLEPHRINE) [Suspect]

REACTIONS (4)
  - Anxiety [Not Recovered/Not Resolved]
  - Respiratory rate increased [Not Recovered/Not Resolved]
  - Nausea [Not Recovered/Not Resolved]
  - Dizziness [Not Recovered/Not Resolved]
